FAERS Safety Report 9346359 (Version 1)
Quarter: 2013Q2

REPORT INFORMATION
  Report Type: Spontaneous
  Country: DE (occurrence: DE)
  Receive Date: 20130613
  Receipt Date: 20130613
  Transmission Date: 20140414
  Serious: Yes (Congenital Anomaly, Other)
  Sender: FDA-Public Use
  Company Number: DE-ELI_LILLY_AND_COMPANY-DE201306001641

PATIENT
  Sex: Female

DRUGS (3)
  1. FLUOXETINE HYDROCHLORIDE [Suspect]
     Indication: DEPRESSION
     Dosage: 40 MG, QD
     Route: 064
  2. FOLIC ACID [Concomitant]
     Route: 064
  3. AMOXICILLIN [Concomitant]

REACTIONS (4)
  - Pyloric stenosis [Unknown]
  - Foetal exposure during pregnancy [Recovered/Resolved]
  - Caesarean section [None]
  - Maternal drugs affecting foetus [None]
